FAERS Safety Report 9553112 (Version 1)
Quarter: 2013Q2

REPORT INFORMATION
  Report Type: Spontaneous
  Country: US (occurrence: None)
  Receive Date: 20130606
  Receipt Date: 20130606
  Transmission Date: 20140414
  Serious: Yes (Other)
  Sender: FDA-Public Use
  Company Number: 2013PROUSA02701

PATIENT
  Age: 80 Year
  Sex: Male

DRUGS (2)
  1. PROVENGE [Suspect]
     Indication: PROSTATE CANCER METASTATIC
     Route: 042
  2. COUMADIN (WARFARIN SODIUM) [Concomitant]

REACTIONS (3)
  - Deep vein thrombosis [None]
  - Gait disturbance [None]
  - Dyspnoea [None]
